FAERS Safety Report 20520222 (Version 2)
Quarter: 2022Q2

REPORT INFORMATION
  Report Type: Spontaneous
  Country: DE (occurrence: DE)
  Receive Date: 20220225
  Receipt Date: 20220610
  Transmission Date: 20220721
  Serious: Yes (Hospitalization, Other)
  Sender: FDA-Public Use
  Company Number: DE-002147023-NVSC2019DE073770

PATIENT
  Age: 50 Year
  Sex: Male
  Weight: 98 kg

DRUGS (29)
  1. EZETIMIBE [Suspect]
     Active Substance: EZETIMIBE
     Indication: Product used for unknown indication
     Dosage: UNK
     Route: 065
     Dates: start: 201706, end: 201709
  2. VALSARTAN [Suspect]
     Active Substance: VALSARTAN
     Indication: Hypertension
     Dosage: 0.5 DOSAGE FORM, QD (0.5 INTO 40 MG)
     Route: 065
  3. VALSARTAN [Suspect]
     Active Substance: VALSARTAN
     Dosage: 80 MILLIGRAM, QD (40 MG, BID (MORNING AND EVENING))
     Route: 065
  4. VALSARTAN [Suspect]
     Active Substance: VALSARTAN
     Dosage: 80 MILLIGRAM (80 MG)
     Route: 065
     Dates: start: 201406, end: 201808
  5. MOXIFLOXACIN [Suspect]
     Active Substance: MOXIFLOXACIN
     Indication: Pyrexia
     Dosage: UNK
     Route: 065
     Dates: start: 201901, end: 201901
  6. MOXIFLOXACIN [Suspect]
     Active Substance: MOXIFLOXACIN
     Indication: Bronchitis
  7. ATORVASTATIN [Suspect]
     Active Substance: ATORVASTATIN
     Indication: Product used for unknown indication
     Dosage: 20 MILLIGRAM, QD (20 MG, QD (EVENING))
     Route: 065
     Dates: start: 2018
  8. VALSARTAN [Suspect]
     Active Substance: VALSARTAN
     Indication: Hypertension
     Dosage: 80 MILLIGRAM, QD (80 MG, QD)
     Route: 065
     Dates: start: 2007
  9. VALSARTAN [Suspect]
     Active Substance: VALSARTAN
     Dosage: 40 MILLIGRAM, QD (40 MG, QD (MORNING))
     Route: 065
  10. VALSARTAN [Suspect]
     Active Substance: VALSARTAN
     Dosage: 80 MILLIGRAM (80 MG)
     Route: 065
     Dates: start: 201406, end: 201808
  11. VALSARTAN [Suspect]
     Active Substance: VALSARTAN
     Dosage: 1 DOSAGE FORM, QD (1 DF (BETWEEN 80 MG AND 160 MG), QD)
     Route: 065
     Dates: start: 201210
  12. PENICILLIN [Suspect]
     Active Substance: PENICILLIN
     Indication: Product used for unknown indication
     Dosage: UNK
     Route: 065
  13. ATORVASTATIN [Suspect]
     Active Substance: ATORVASTATIN
     Indication: Product used for unknown indication
     Dosage: 80 MILLIGRAM
     Route: 065
  14. AMIODARONE HYDROCHLORIDE [Suspect]
     Active Substance: AMIODARONE HYDROCHLORIDE
     Indication: Product used for unknown indication
     Dosage: 200 MILLIGRAM (200 MG)
     Route: 065
  15. OMEPRAZOLE [Concomitant]
     Active Substance: OMEPRAZOLE
     Indication: Product used for unknown indication
     Dosage: 20 MILLIGRAM, QD
     Route: 065
  16. GARLIC [Concomitant]
     Active Substance: GARLIC
     Indication: Product used for unknown indication
     Dosage: 2000 MILLIGRAM, QD (1000 MG, BID)
     Route: 065
  17. GARLIC [Concomitant]
     Active Substance: GARLIC
     Dosage: UNK
  18. PITAVASTATIN CALCIUM [Concomitant]
     Active Substance: PITAVASTATIN CALCIUM
     Indication: Product used for unknown indication
     Dosage: 2 MILLIGRAM, QD (2 MG, QD)
     Route: 065
  19. ASPIRIN [Concomitant]
     Active Substance: ASPIRIN
     Indication: Product used for unknown indication
     Dosage: 100 MILLIGRAM (100 MG)
     Route: 065
     Dates: start: 2007
  20. CHOLECALCIFEROL [Concomitant]
     Active Substance: CHOLECALCIFEROL
     Indication: Product used for unknown indication
     Dosage: UNK
     Route: 065
  21. ASPIRIN [Concomitant]
     Active Substance: ASPIRIN
     Indication: Product used for unknown indication
     Dosage: 100 MILLIGRAM, QD (100 MG, QD)
     Route: 065
  22. TICAGRELOR [Concomitant]
     Active Substance: TICAGRELOR
     Indication: Product used for unknown indication
     Dosage: 180 MILLIGRAM, QD (90 MG, BID)
     Route: 065
  23. SIMVASTATIN [Concomitant]
     Active Substance: SIMVASTATIN
     Indication: Product used for unknown indication
     Dosage: UNK
     Route: 065
  24. OMEGA-3 FATTY ACIDS [Concomitant]
     Active Substance: OMEGA-3 FATTY ACIDS
     Indication: Product used for unknown indication
     Dosage: 2000 MILLIGRAM, QD (1000 MG, BID)
     Route: 065
  25. MAGNESIUM [Concomitant]
     Active Substance: MAGNESIUM
     Indication: Product used for unknown indication
     Dosage: 300 MILLIGRAM, QD (300 MG, QD)
     Route: 065
  26. BUTOSOL [Concomitant]
     Indication: Product used for unknown indication
     Dosage: 1 DOSAGE FORM, QD (1 DF, QD)
     Route: 065
  27. PITAVASTATIN CALCIUM [Concomitant]
     Active Substance: PITAVASTATIN CALCIUM
     Indication: Product used for unknown indication
     Dosage: 2 MILLIGRAM, QD (2 MG, QD)
     Route: 065
  28. ATORVASTATIN [Concomitant]
     Active Substance: ATORVASTATIN
     Indication: Product used for unknown indication
     Dosage: 20 MILLIGRAM, QD (20 MG, QD (EVENING))
     Route: 065
  29. ASPIRIN [Concomitant]
     Active Substance: ASPIRIN
     Indication: Product used for unknown indication
     Dosage: 1 DOSAGE FORM, QD (1 DF, QD (EVENING))
     Route: 065

REACTIONS (63)
  - Fall [Unknown]
  - Squamous cell carcinoma [Unknown]
  - Drug intolerance [Unknown]
  - Haemarthrosis [Unknown]
  - Chest discomfort [Unknown]
  - Cough [Not Recovered/Not Resolved]
  - Myocardial infarction [Unknown]
  - Ventricular extrasystoles [Unknown]
  - Dizziness [Unknown]
  - Spinal stenosis [Unknown]
  - Dyspnoea [Unknown]
  - Pain [Unknown]
  - Rhinitis allergic [Unknown]
  - Limb injury [Unknown]
  - Arrhythmia [Unknown]
  - Back pain [Unknown]
  - Contusion [Unknown]
  - Tinnitus [Unknown]
  - Hypertension [Unknown]
  - Productive cough [Unknown]
  - Gait disturbance [Unknown]
  - Spinal osteoarthritis [Unknown]
  - Viral infection [Unknown]
  - Fatigue [Unknown]
  - Muscle spasms [Unknown]
  - Joint dislocation [Unknown]
  - Asthma [Unknown]
  - Bronchitis chronic [Recovering/Resolving]
  - Chronic obstructive pulmonary disease [Unknown]
  - Asthenia [Unknown]
  - Arteriosclerosis [Unknown]
  - Hypersensitivity [Unknown]
  - Hypercholesterolaemia [Unknown]
  - Hepatic pain [Recovered/Resolved]
  - C-reactive protein increased [Unknown]
  - Palpitations [Unknown]
  - Coronary artery disease [Unknown]
  - Heart rate increased [Unknown]
  - Blood pressure abnormal [Recovered/Resolved]
  - Hypertensive crisis [Recovering/Resolving]
  - Dyspnoea exertional [Unknown]
  - Osteoarthritis [Unknown]
  - Pyrexia [Recovering/Resolving]
  - Hyperhidrosis [Unknown]
  - Hypoaesthesia [Unknown]
  - Anxiety [Unknown]
  - Malaise [Unknown]
  - Myalgia [Recovered/Resolved]
  - Cardiac discomfort [Unknown]
  - Chest pain [Unknown]
  - Sinusitis [Unknown]
  - Bradycardia [Unknown]
  - General physical health deterioration [Unknown]
  - Nausea [Unknown]
  - Blood pressure increased [Recovering/Resolving]
  - Merycism [Unknown]
  - Fear of disease [Unknown]
  - Quality of life decreased [Unknown]
  - Panic disorder [Unknown]
  - Hypersomnia [Unknown]
  - Emotional distress [Unknown]
  - Sleep disorder [Unknown]
  - Drug hypersensitivity [Unknown]

NARRATIVE: CASE EVENT DATE: 20070101
